FAERS Safety Report 7736984-3 (Version None)
Quarter: 2011Q3

REPORT INFORMATION
  Report Type: 
  Country: None (occurrence: None)
  Receive Date: 20110908
  Receipt Date: 20110901
  Transmission Date: 20111222
  Serious: Yes (Other)
  Sender: FDA-Public Use
  Company Number: BE-ROCHE-778856

PATIENT
  Sex: Female

DRUGS (1)
  1. ACTEMRA [Suspect]
     Route: 065

REACTIONS (2)
  - CATARACT [None]
  - GLAUCOMA [None]
